FAERS Safety Report 20841307 (Version 2)
Quarter: 2022Q2

REPORT INFORMATION
  Report Type: Report from Study
  Country: CA (occurrence: CA)
  Receive Date: 20220517
  Receipt Date: 20220527
  Transmission Date: 20220721
  Serious: Yes (Hospitalization)
  Sender: FDA-Public Use
  Company Number: CA-BRISTOL-MYERS SQUIBB COMPANY-2022-024766

PATIENT
  Age: 74 Year
  Sex: Male
  Weight: 66 kg

DRUGS (4)
  1. OPDIVO [Suspect]
     Active Substance: NIVOLUMAB
     Indication: Pleural mesothelioma
     Dosage: 3 WEEKS
     Route: 042
     Dates: start: 20220408, end: 20220429
  2. YERVOY [Suspect]
     Active Substance: IPILIMUMAB
     Indication: Pleural mesothelioma
     Route: 042
     Dates: start: 20220408, end: 20220429
  3. ROSUVASTATIN [Concomitant]
     Active Substance: ROSUVASTATIN
     Indication: Product used for unknown indication
     Route: 048
     Dates: start: 20220213
  4. LORAZEPAM [Concomitant]
     Active Substance: LORAZEPAM
     Indication: Product used for unknown indication
     Route: 048
     Dates: start: 20220331

REACTIONS (18)
  - General physical health deterioration [Unknown]
  - Weight decreased [Unknown]
  - Blood pressure systolic decreased [Unknown]
  - Blood pressure diastolic decreased [Unknown]
  - Heart rate increased [Unknown]
  - Respiratory rate increased [Unknown]
  - Intra-abdominal fluid collection [Unknown]
  - Oxygen saturation decreased [Unknown]
  - Malaise [Unknown]
  - Cough [Unknown]
  - Diarrhoea [Unknown]
  - Fatigue [Unknown]
  - Feeling abnormal [Unknown]
  - Depression [Unknown]
  - Abdominal distension [Unknown]
  - Back pain [Unknown]
  - Palpitations [Unknown]
  - Prescribed overdose [Unknown]

NARRATIVE: CASE EVENT DATE: 20220401
